FAERS Safety Report 16201454 (Version 1)
Quarter: 2019Q2

REPORT INFORMATION
  Report Type: Spontaneous
  Country: US (occurrence: US)
  Receive Date: 20190415
  Receipt Date: 20190415
  Transmission Date: 20190711
  Serious: Yes (Death)
  Sender: FDA-Public Use
  Company Number: None

PATIENT
  Age: 84 Year
  Sex: Female
  Weight: 50.18 kg

DRUGS (10)
  1. ONDANSETRON [Concomitant]
     Active Substance: ONDANSETRON
  2. METOPROLOL. [Concomitant]
     Active Substance: METOPROLOL
  3. NIFEDIPINE. [Concomitant]
     Active Substance: NIFEDIPINE
  4. TRAMADOL. [Concomitant]
     Active Substance: TRAMADOL
  5. ATORVASTATIN [Concomitant]
     Active Substance: ATORVASTATIN
  6. ASPIRIN. [Concomitant]
     Active Substance: ASPIRIN
  7. PLAVIX [Concomitant]
     Active Substance: CLOPIDOGREL BISULFATE
  8. LISINOPRIL. [Concomitant]
     Active Substance: LISINOPRIL
  9. CAPECITABINE. [Suspect]
     Active Substance: CAPECITABINE
     Indication: GASTRIC CANCER
     Route: 048
     Dates: start: 20190307, end: 20190407
  10. CAPECITABINE. [Concomitant]
     Active Substance: CAPECITABINE

REACTIONS (1)
  - Death [None]

NARRATIVE: CASE EVENT DATE: 20190415
